FAERS Safety Report 9862957 (Version 2)
Quarter: 2018Q1

REPORT INFORMATION
  Report Type: Report from Study
  Country: US (occurrence: US)
  Receive Date: 20140203
  Receipt Date: 20180301
  Transmission Date: 20180509
  Serious: Yes (Other)
  Sender: FDA-Public Use
  Company Number: US-ROCHE-1341144

PATIENT
  Age: 10 Year
  Sex: Female
  Weight: 49 kg

DRUGS (12)
  1. SYNTHROID [Concomitant]
     Active Substance: LEVOTHYROXINE SODIUM
     Route: 048
  2. HYDROCORTISONE. [Concomitant]
     Active Substance: HYDROCORTISONE
     Dosage: IN THE MORNING
     Route: 048
  3. NUTROPIN AQ [Suspect]
     Active Substance: SOMATROPIN
     Indication: GROWTH HORMONE DEFICIENCY
     Route: 058
  4. CYCLOPHOSPHAMIDE. [Concomitant]
     Active Substance: CYCLOPHOSPHAMIDE
  5. HYDROCORTISONE. [Concomitant]
     Active Substance: HYDROCORTISONE
     Dosage: AM
     Route: 065
  6. HYDROCORTISONE. [Concomitant]
     Active Substance: HYDROCORTISONE
     Dosage: PM
     Route: 065
  7. IRINOTECAN [Concomitant]
     Active Substance: IRINOTECAN
  8. DOXORUBICIN [Concomitant]
     Active Substance: DOXORUBICIN
  9. VINCRISTINE [Concomitant]
     Active Substance: VINCRISTINE
  10. ETOPOSIDE. [Concomitant]
     Active Substance: ETOPOSIDE
  11. LUPRON DEPOT [Concomitant]
     Active Substance: LEUPROLIDE ACETATE
     Route: 030
  12. CARBOPLATIN. [Concomitant]
     Active Substance: CARBOPLATIN

REACTIONS (7)
  - Increased appetite [Unknown]
  - Haemorrhage [Unknown]
  - Conductive deafness [Unknown]
  - Nasal congestion [Unknown]
  - Cough [Unknown]
  - Mood swings [Unknown]
  - Ear infection [Unknown]

NARRATIVE: CASE EVENT DATE: 2013
